FAERS Safety Report 10145502 (Version 3)
Quarter: 2014Q2

REPORT INFORMATION
  Report Type: Spontaneous
  Country: ES (occurrence: ES)
  Receive Date: 20140501
  Receipt Date: 20140522
  Transmission Date: 20141212
  Serious: Yes (Other)
  Sender: FDA-Public Use
  Company Number: ES-JNJFOC-20121010635

PATIENT
  Sex: Male

DRUGS (3)
  1. ABIRATERONA ACETATE [Suspect]
     Indication: PROSTATE CANCER METASTATIC
     Route: 048
  2. PREDNISONE [Concomitant]
     Indication: PROSTATE CANCER METASTATIC
     Route: 065
  3. PREDNISOLONE [Concomitant]
     Indication: PROSTATE CANCER METASTATIC
     Route: 065

REACTIONS (8)
  - Fluid retention [Unknown]
  - Transaminases increased [Unknown]
  - Cardiac failure [Unknown]
  - Asthenia [Unknown]
  - Hypokalaemia [Unknown]
  - Cardiac disorder [Unknown]
  - No therapeutic response [Unknown]
  - Fatigue [Unknown]
